FAERS Safety Report 14668879 (Version 1)
Quarter: 2018Q1

REPORT INFORMATION
  Report Type: Spontaneous
  Country: US (occurrence: US)
  Receive Date: 20180322
  Receipt Date: 20180322
  Transmission Date: 20180509
  Serious: Yes (Hospitalization)
  Sender: FDA-Public Use
  Company Number: US-ACTELION-A-NJ2018-169396

PATIENT
  Age: 2 Year
  Sex: Female
  Weight: 6.35 kg

DRUGS (4)
  1. TRACLEER [Suspect]
     Active Substance: BOSENTAN
     Dosage: 1 MG/KG, UNK
     Route: 065
     Dates: start: 20160806, end: 20160812
  2. TRACLEER [Suspect]
     Active Substance: BOSENTAN
     Dosage: 2 MG/KG, UNK
     Route: 065
     Dates: start: 20160813
  3. TRACLEER [Suspect]
     Active Substance: BOSENTAN
     Indication: PULMONARY HYPERTENSION
     Dosage: 17.5 MG, BID
     Route: 049
  4. REVATIO [Concomitant]
     Active Substance: SILDENAFIL CITRATE

REACTIONS (1)
  - Aspiration [Not Recovered/Not Resolved]
